FAERS Safety Report 5916824-5 (Version None)
Quarter: 2008Q4

REPORT INFORMATION
  Report Type: 
  Country: None (occurrence: None)
  Receive Date: 20081013
  Receipt Date: 20081001
  Transmission Date: 20090506
  Serious: Yes (Other)
  Sender: FDA-Public Use
  Company Number: US-PFIZER INC-2008085048

PATIENT
  Sex: Male
  Weight: 118 kg

DRUGS (2)
  1. CHANTIX [Suspect]
     Indication: SMOKING CESSATION THERAPY
     Dates: start: 20080924
  2. HYDROXYZINE [Concomitant]
     Indication: ANXIETY

REACTIONS (1)
  - AGITATION [None]
